FAERS Safety Report 5812886-4 (Version None)
Quarter: 2008Q3

REPORT INFORMATION
  Report Type: 
  Country: None (occurrence: None)
  Receive Date: 20080717
  Receipt Date: 20070612
  Transmission Date: 20090109
  Serious: No
  Sender: FDA-Public Use
  Company Number: A0654977A

PATIENT
  Age: 30 Year

DRUGS (3)
  1. NICORETTE [Suspect]
     Dates: start: 20070601
  2. NICODERM CQ [Suspect]
  3. NICODERM CQ [Suspect]

REACTIONS (3)
  - APPLICATION SITE RASH [None]
  - HYPERSENSITIVITY [None]
  - NICOTINE DEPENDENCE [None]
